FAERS Safety Report 9411367 (Version 1)
Quarter: 2013Q3

REPORT INFORMATION
  Report Type: Spontaneous
  Country: US (occurrence: US)
  Receive Date: 20130722
  Receipt Date: 20130722
  Transmission Date: 20140515
  Serious: No
  Sender: FDA-Public Use
  Company Number: US-BIOGENIDEC-2013BI066083

PATIENT
  Sex: Female

DRUGS (1)
  1. TYSABRI [Suspect]
     Indication: MULTIPLE SCLEROSIS
     Route: 042
     Dates: start: 20130201

REACTIONS (7)
  - Stomatitis [Unknown]
  - Gingival disorder [Unknown]
  - Stress [Unknown]
  - Oral herpes [Unknown]
  - Rash [Unknown]
  - Asthenia [Unknown]
  - Nasopharyngitis [Unknown]
